FAERS Safety Report 22241580 (Version 1)
Quarter: 2023Q2

REPORT INFORMATION
  Report Type: Spontaneous
  Country: None (occurrence: US)
  Receive Date: 20230421
  Receipt Date: 20230421
  Transmission Date: 20230721
  Serious: Yes (Other)
  Sender: FDA-Public Use
  Company Number: US-Standard Homeopathic-2140676

PATIENT
  Age: 24 Month
  Sex: Male

DRUGS (1)
  1. 4 KIDS COLD AND COUGH DAY AND NIGHT GRAPE FLAVOR [Suspect]
     Active Substance: HOMEOPATHICS
     Indication: Rhinorrhoea
     Route: 048
     Dates: start: 202303, end: 20230326

REACTIONS (1)
  - Seizure [Recovering/Resolving]

NARRATIVE: CASE EVENT DATE: 20230331
